FAERS Safety Report 17845065 (Version 1)
Quarter: 2020Q2

REPORT INFORMATION
  Report Type: Spontaneous
  Country: US (occurrence: US)
  Receive Date: 20200529
  Receipt Date: 20200529
  Transmission Date: 20200714
  Serious: Yes (Death)
  Sender: FDA-Public Use
  Company Number: None

PATIENT
  Age: 59 Year
  Sex: Male
  Weight: 73 kg

DRUGS (16)
  1. AZITHROMYCIN ANHYDROUS. [Concomitant]
     Active Substance: AZITHROMYCIN ANHYDROUS
     Dates: start: 20200518, end: 20200520
  2. ASCORBIC ACID. [Concomitant]
     Active Substance: ASCORBIC ACID
     Dates: start: 20200521, end: 20200528
  3. INSULIN LISPRO [Concomitant]
     Active Substance: INSULIN LISPRO
     Dates: start: 20200524, end: 20200528
  4. VACOMYCIN [Concomitant]
     Active Substance: VANCOMYCIN
     Dates: start: 20200521, end: 20200524
  5. MEDROL [Concomitant]
     Active Substance: METHYLPREDNISOLONE
     Dates: start: 20200520, end: 20200524
  6. CEFTRIAXONE. [Concomitant]
     Active Substance: CEFTRIAXONE
     Dates: start: 20200521, end: 20200522
  7. VERSED [Concomitant]
     Active Substance: MIDAZOLAM HYDROCHLORIDE
     Dates: start: 20200523, end: 20200528
  8. ZOSYN [Concomitant]
     Active Substance: PIPERACILLIN SODIUM\TAZOBACTAM SODIUM
     Dates: start: 20200525, end: 20200528
  9. NOREPINEPHRINE. [Concomitant]
     Active Substance: NOREPINEPHRINE
     Dates: start: 20200523, end: 20200528
  10. AMLODOPINE [Concomitant]
     Active Substance: AMLODIPINE BESYLATE
     Dates: start: 20200520, end: 20200524
  11. VASOPRESSIN. [Concomitant]
     Active Substance: VASOPRESSIN
     Dates: start: 20200523, end: 20200528
  12. REMDESIVIR. [Suspect]
     Active Substance: REMDESIVIR
     Indication: COVID-19
     Route: 041
     Dates: start: 20200523, end: 20200527
  13. LOVENOX [Concomitant]
     Active Substance: ENOXAPARIN SODIUM
     Dates: start: 20200520, end: 20200528
  14. PROPOFOL. [Concomitant]
     Active Substance: PROPOFOL
     Dates: start: 20200523, end: 20200528
  15. REMDESIVIR. [Suspect]
     Active Substance: REMDESIVIR
     Indication: COVID-19
     Route: 041
     Dates: start: 20200522, end: 20200522
  16. CONVALESCENT PLASMA [Concomitant]
     Active Substance: HUMAN PLASMA
     Dates: start: 20200520, end: 20200520

REACTIONS (12)
  - Sepsis [None]
  - Oliguria [None]
  - Multiple organ dysfunction syndrome [None]
  - Blood creatinine increased [None]
  - Blood pressure systolic decreased [None]
  - Respiratory failure [None]
  - Acute kidney injury [None]
  - Acidosis [None]
  - Hypotension [None]
  - Pneumonia [None]
  - Renal impairment [None]
  - Bronchitis [None]

NARRATIVE: CASE EVENT DATE: 20200528
